FAERS Safety Report 7198004 (Version 3)
Quarter: 2014Q3

REPORT INFORMATION
  Report Type: Spontaneous
  Country: US (occurrence: US)
  Receive Date: 20091203
  Receipt Date: 20140703
  Transmission Date: 20150326
  Serious: Yes (Life-Threatening, Hospitalization, Disabling, Other)
  Sender: FDA-Public Use
  Company Number: US-BAYER-200941417NA

PATIENT
  Age: 48 Year
  Sex: Female
  Weight: 123 kg

DRUGS (22)
  1. CANCIDAS [Concomitant]
     Active Substance: CASPOFUNGIN ACETATE
     Indication: CANDIDA SEPSIS
     Dosage: 50 MG (DAILY DOSE), QD, INTRAVENOUS
     Route: 042
  2. LASIX [Concomitant]
     Active Substance: FUROSEMIDE
     Indication: PRODUCT USED FOR UNKNOWN INDICATION
  3. COLACE [Concomitant]
     Active Substance: DOCUSATE SODIUM
     Route: 048
  4. FENTANYL. [Concomitant]
     Active Substance: FENTANYL
     Dosage: 50MG Q2HR PRN
     Route: 042
  5. HUMALOG [Concomitant]
     Active Substance: INSULIN LISPRO
     Dosage: SLIDING SCALE
  6. LANTUS [Concomitant]
     Active Substance: INSULIN GLARGINE
     Route: 058
  7. COLOXYL WITH SENNA [Concomitant]
     Active Substance: DOCUSATE\SENNOSIDES
     Dosage: ONE TABLET ORALLY TWICE DAILY
     Route: 048
  8. YAZ [Suspect]
     Active Substance: DROSPIRENONE\ETHINYL ESTRADIOL
     Indication: PREMENSTRUAL SYNDROME
     Dosage: 1 DF (DAILY DOSE), QD, ORAL
     Route: 048
     Dates: start: 200710, end: 20071113
  9. LACTULOSE. [Concomitant]
     Active Substance: LACTULOSE
     Route: 048
  10. PROTONIX [Concomitant]
     Active Substance: PANTOPRAZOLE SODIUM
     Dosage: 40 MG (DAILY DOSE), , ORAL
     Route: 048
  11. LACRI-LUBE [Concomitant]
     Indication: DRY EYE
     Dosage: ONE RIBBON TO BOTH EYES
     Route: 047
  12. CANCIDAS [Concomitant]
     Active Substance: CASPOFUNGIN ACETATE
     Indication: CANDIDA SEPSIS
     Dates: start: 20071124
  13. SENOKOT-S [Concomitant]
     Active Substance: DOCUSATE SODIUM\SENNOSIDES
     Dosage: ONE TABLET ORALLY TWICE DAILY
     Route: 048
  14. ALLEGRA [Concomitant]
     Active Substance: FEXOFENADINE HYDROCHLORIDE
  15. FLONASE [Concomitant]
     Active Substance: FLUTICASONE PROPIONATE
  16. CATAPRES [Concomitant]
     Active Substance: CLONIDINE HYDROCHLORIDE
     Dosage: ON CHEST WALL
  17. KEPPRA [Concomitant]
     Active Substance: LEVETIRACETAM
     Route: 048
  18. ZOFRAN [Concomitant]
     Active Substance: ONDANSETRON HYDROCHLORIDE
     Route: 042
  19. MOM [Concomitant]
     Active Substance: MAGNESIUM HYDROXIDE
     Dosage: 30 ML (DAILY DOSE), PRN, ORAL
     Route: 048
  20. PLATELETS [Concomitant]
     Active Substance: HUMAN PLATELET, ALLOGENIC
     Indication: DISSEMINATED INTRAVASCULAR COAGULATION
  21. LISINOPRIL. [Concomitant]
     Active Substance: LISINOPRIL
     Route: 048
  22. CORTICOSTEROIDS [Concomitant]
     Active Substance: CORTICOSTEROID NOS
     Indication: PRODUCT USED FOR UNKNOWN INDICATION

REACTIONS (23)
  - Syncope [None]
  - Hemiplegia [None]
  - Amnesia [None]
  - Pulmonary embolism [None]
  - Brain oedema [Unknown]
  - Pelvic venous thrombosis [None]
  - Dyspnoea [None]
  - Cardiac arrest [Unknown]
  - Deep vein thrombosis [Recovering/Resolving]
  - Deep vein thrombosis [Recovering/Resolving]
  - Atrial fibrillation [None]
  - Hemiparesis [Unknown]
  - Mental status changes [Unknown]
  - Hypotension [None]
  - Aphasia [Unknown]
  - Confusional state [Unknown]
  - Haemorrhagic stroke [Unknown]
  - Dysarthria [Unknown]
  - Respiratory arrest [Unknown]
  - Intracranial haematoma [Unknown]
  - Mesenteric vein thrombosis [None]
  - Vena cava thrombosis [Recovering/Resolving]
  - Hypertension [Unknown]

NARRATIVE: CASE EVENT DATE: 200711
